FAERS Safety Report 5275602-3 (Version None)
Quarter: 2007Q1

REPORT INFORMATION
  Report Type: 
  Country: None (occurrence: None)
  Receive Date: 20070326
  Receipt Date: 20070314
  Transmission Date: 20070707
  Serious: Yes (Other)
  Sender: FDA-Public Use
  Company Number: PHNU2007DE01193

PATIENT
  Sex: Male

DRUGS (3)
  1. LEPONEX [Suspect]
     Dosage: 50 MG/DAY
     Route: 048
     Dates: start: 20040901, end: 20050701
  2. SOLIAN [Concomitant]
     Dosage: UNKNOWN
     Route: 048
  3. ERGENYL CHRONO [Concomitant]
     Dosage: UNKNOWN
     Route: 048

REACTIONS (1)
  - DUODENAL ULCER [None]
